FAERS Safety Report 4967377-X (Version None)
Quarter: 2006Q2

REPORT INFORMATION
  Report Type: 
  Country: None (occurrence: None)
  Receive Date: 20060407
  Receipt Date: 20060407
  Transmission Date: 20061013
  Serious: Yes (Hospitalization)
  Sender: FDA-Public Use
  Company Number: None

PATIENT
  Age: 38 Year
  Sex: Female
  Weight: 87.9978 kg

DRUGS (2)
  1. MORPHINE SULFATE INJ [Suspect]
     Indication: PROCEDURAL PAIN
     Dosage: 2 MG ONE TIME DOSE IV BOLUS
     Route: 042
     Dates: start: 20060405, end: 20060405
  2. SODIUM CHLORIDE 0.9% [Suspect]

REACTIONS (3)
  - BRONCHOSPASM [None]
  - RESPIRATORY DISTRESS [None]
  - URTICARIA [None]
